FAERS Safety Report 9393388 (Version 8)
Quarter: 2014Q2

REPORT INFORMATION
  Report Type: Report from Study
  Country: DE (occurrence: DE)
  Receive Date: 20130710
  Receipt Date: 20140529
  Transmission Date: 20141212
  Serious: Yes (Hospitalization, Other)
  Sender: FDA-Public Use
  Company Number: PHHY2013DE071974

PATIENT
  Sex: Female
  Weight: 69 kg

DRUGS (11)
  1. AFINITOR [Suspect]
     Indication: BREAST CANCER METASTATIC
     Dosage: 10 MG, DAILY
     Route: 048
     Dates: start: 20130409, end: 20130422
  2. AFINITOR [Suspect]
     Dosage: 10 MG, DAILY
     Route: 048
     Dates: start: 20130426, end: 20130528
  3. AFINITOR [Suspect]
     Dosage: 5 MG, DAILY
     Route: 048
     Dates: start: 20130529, end: 20130530
  4. AFINITOR [Suspect]
     Dosage: 10 MG, DAILY
     Route: 048
     Dates: start: 20130531, end: 20130701
  5. AFINITOR [Suspect]
     Dosage: 5 MG, DAILY
     Route: 048
     Dates: start: 20130702, end: 20131021
  6. AROMASIN [Suspect]
     Indication: BREAST CANCER METASTATIC
     Dosage: 25 MG, DAILY
     Route: 048
     Dates: start: 20130409, end: 20131021
  7. BISPHOSPHONATES [Concomitant]
     Indication: BONE DISORDER
  8. RAMIPRIL [Concomitant]
     Dosage: 5 MG, UNK
     Dates: start: 200606
  9. METOPROLOL [Concomitant]
     Dosage: 47.5 MG, UNK
     Dates: start: 200606
  10. NOVALGIN                                /SCH/ [Concomitant]
     Dates: start: 200806
  11. ZOMETA [Concomitant]
     Dosage: 4 MG, UNK
     Dates: start: 20060518

REACTIONS (3)
  - General physical health deterioration [Recovered/Resolved]
  - Epistaxis [Not Recovered/Not Resolved]
  - Anaemia [Recovered/Resolved]
